FAERS Safety Report 4765671-9 (Version None)
Quarter: 2005Q3

REPORT INFORMATION
  Report Type: 
  Country: None (occurrence: None)
  Receive Date: 20050906
  Receipt Date: 20050828
  Transmission Date: 20060218
  Serious: Yes (Death, Other)
  Sender: FDA-Public Use
  Company Number: 2005EU001770

PATIENT
  Age: 15 Year
  Sex: Male

DRUGS (3)
  1. PROGRAF [Suspect]
     Indication: LIVER TRANSPLANT
  2. PREDNISONE [Suspect]
     Indication: LIVER TRANSPLANT
  3. MYCOPHENOLATE MOFETIL (MYCOPHENOLATE MOFETIL) [Suspect]

REACTIONS (11)
  - ABDOMINAL PAIN [None]
  - AUTOIMMUNE HEPATITIS [None]
  - BRONCHOPULMONARY ASPERGILLOSIS [None]
  - CHOLANGITIS [None]
  - HAEMOPTYSIS [None]
  - HYDROPNEUMOTHORAX [None]
  - JAUNDICE [None]
  - LUNG DISORDER [None]
  - PSEUDOMONAS INFECTION [None]
  - PULMONARY FUNCTION TEST DECREASED [None]
  - RESPIRATORY FAILURE [None]
